FAERS Safety Report 24578033 (Version 3)
Quarter: 2025Q1

REPORT INFORMATION
  Report Type: Spontaneous
  Country: US (occurrence: US)
  Receive Date: 20241104
  Receipt Date: 20250211
  Transmission Date: 20250408
  Serious: Yes (Disabling, Other)
  Sender: APELLIS PHARMACEUTICALS
  Company Number: US-APELLIS PHARMACEUTICALS-APL-2023-002523

PATIENT

DRUGS (9)
  1. SYFOVRE [Suspect]
     Active Substance: PEGCETACOPLAN
     Indication: Dry age-related macular degeneration
     Route: 031
     Dates: start: 20230530, end: 20230530
  2. EYLEA [Concomitant]
     Active Substance: AFLIBERCEPT
     Indication: Age-related macular degeneration
     Dates: start: 20230502, end: 20230502
  3. EYLEA [Concomitant]
     Active Substance: AFLIBERCEPT
     Dates: start: 202004
  4. LEVOTHYROXINE SODIUM [Concomitant]
     Active Substance: LEVOTHYROXINE SODIUM
     Indication: Product used for unknown indication
     Dosage: 1 TABS PO QD
     Route: 048
  5. PREDNISONE [Concomitant]
     Active Substance: PREDNISONE
     Indication: Product used for unknown indication
     Dosage: 5 PO QD
     Route: 048
  6. Macuhealth [Concomitant]
     Indication: Product used for unknown indication
     Dosage: 1 TAB PO QD
     Route: 048
  7. ATROPINE SULFATE [Concomitant]
     Active Substance: ATROPINE SULFATE
     Indication: Product used for unknown indication
     Dosage: 1 GTT OU BID
     Route: 047
  8. DIFLUPREDNATE [Concomitant]
     Active Substance: DIFLUPREDNATE
     Indication: Product used for unknown indication
     Dosage: 1 GTT OU TID
     Route: 047
  9. VITAMIN D [Concomitant]
     Active Substance: VITAMIN D NOS
     Indication: Product used for unknown indication

REACTIONS (24)
  - Retinal occlusive vasculitis [Recovered/Resolved with Sequelae]
  - Retinal occlusive vasculitis [Recovered/Resolved with Sequelae]
  - Visual impairment [Recovered/Resolved with Sequelae]
  - Visual impairment [Recovered/Resolved with Sequelae]
  - Papilloedema [Recovered/Resolved with Sequelae]
  - Papilloedema [Recovered/Resolved with Sequelae]
  - Papilloedema [Unknown]
  - Optic nerve infarction [Unknown]
  - Uveitis [Unknown]
  - Uveitis [Unknown]
  - Blindness [Unknown]
  - Post procedural complication [Unknown]
  - Adverse drug reaction [Unknown]
  - Corneal oedema [Recovered/Resolved with Sequelae]
  - Corneal oedema [Recovered/Resolved with Sequelae]
  - Ocular hyperaemia [Not Recovered/Not Resolved]
  - Ocular hyperaemia [Not Recovered/Not Resolved]
  - Punctate keratitis [Unknown]
  - Serous retinal detachment [Unknown]
  - Pseudophakia [Unknown]
  - Vitreous detachment [Unknown]
  - Cataract nuclear [Unknown]
  - Retinal haemorrhage [Unknown]
  - Cystoid macular oedema [Unknown]

NARRATIVE: CASE EVENT DATE: 20230612
